FAERS Safety Report 5790790-8 (Version None)
Quarter: 2008Q2

REPORT INFORMATION
  Report Type: 
  Country: None (occurrence: None)
  Receive Date: 20080626
  Receipt Date: 20080506
  Transmission Date: 20081010
  Serious: No
  Sender: FDA-Public Use
  Company Number: A0726525A

PATIENT
  Age: 28 Year
  Sex: Female
  Weight: 63 kg

DRUGS (2)
  1. ALLI [Suspect]
     Dates: start: 20080427
  2. MULTI-VITAMIN [Concomitant]

REACTIONS (3)
  - CHROMATURIA [None]
  - GASTRIC DISORDER [None]
  - POLLAKIURIA [None]
